FAERS Safety Report 11199525 (Version 1)
Quarter: 2015Q2

REPORT INFORMATION
  Report Type: Spontaneous
  Country: IN (occurrence: IN)
  Receive Date: 20150618
  Receipt Date: 20150618
  Transmission Date: 20150821
  Serious: Yes (Other)
  Sender: FDA-Public Use
  Company Number: IN-MYLANLABS-2015M1019043

PATIENT

DRUGS (1)
  1. PREDNISOLONE. [Suspect]
     Active Substance: PREDNISOLONE
     Indication: NEPHROTIC SYNDROME
     Dosage: WAS RECEIVING 5MG THRICE DAILY INSTEAD OF 10MG THRICE DAILY
     Route: 065

REACTIONS (3)
  - Accidental underdose [Unknown]
  - Drug ineffective [Unknown]
  - Drug resistance [Unknown]
